FAERS Safety Report 9880255 (Version 2)
Quarter: 2014Q1

REPORT INFORMATION
  Report Type: Spontaneous
  Country: US (occurrence: US)
  Receive Date: 20140207
  Receipt Date: 20140326
  Transmission Date: 20141002
  Serious: Yes (Hospitalization)
  Sender: FDA-Public Use
  Company Number: US-BRISTOL-MYERS SQUIBB COMPANY-20143830

PATIENT
  Age: 45 Year
  Sex: Female

DRUGS (3)
  1. ABILIFY [Suspect]
     Dosage: DOSE DECREASED TO 15 MG ONCE DAILY.
     Route: 048
  2. ABILIFY MAINTENA INJECTION [Suspect]
     Indication: SCHIZOAFFECTIVE DISORDER
     Route: 030
  3. SEROQUEL [Concomitant]

REACTIONS (6)
  - Delusion [Unknown]
  - Thinking abnormal [Unknown]
  - Agitation [Unknown]
  - Paranoia [Unknown]
  - Insomnia [Unknown]
  - Off label use [Unknown]
